FAERS Safety Report 20999582 (Version 2)
Quarter: 2022Q2

REPORT INFORMATION
  Report Type: Spontaneous
  Country: US (occurrence: US)
  Receive Date: 20220623
  Receipt Date: 20220628
  Transmission Date: 20220721
  Serious: No
  Sender: FDA-Public Use
  Company Number: US-ORGANON-O2206USA002024

PATIENT
  Age: 63 Year

DRUGS (1)
  1. ASMANEX [Suspect]
     Active Substance: MOMETASONE FUROATE
     Dosage: 220 MCG 60 DOSE, 2 PUFFS A DAY
     Dates: start: 20220606, end: 202206

REACTIONS (4)
  - Device malfunction [Unknown]
  - Poor quality device used [Unknown]
  - Product dose omission issue [Unknown]
  - No adverse event [Unknown]

NARRATIVE: CASE EVENT DATE: 20220601
